FAERS Safety Report 9463162 (Version 1)
Quarter: 2013Q3

REPORT INFORMATION
  Report Type: Spontaneous
  Country: CA (occurrence: CA)
  Receive Date: 20130817
  Receipt Date: 20130817
  Transmission Date: 20140515
  Serious: Yes (Other)
  Sender: FDA-Public Use
  Company Number: CA-009507513-1308CAN007542

PATIENT
  Sex: Male

DRUGS (1)
  1. VICTRELIS TRIPLE [Suspect]
     Indication: PRODUCT USED FOR UNKNOWN INDICATION
     Dosage: 120 MICROGRAM, UNK

REACTIONS (2)
  - Sudden hearing loss [Not Recovered/Not Resolved]
  - Hypoacusis [Not Recovered/Not Resolved]
